FAERS Safety Report 4922742-1 (Version None)
Quarter: 2006Q1

REPORT INFORMATION
  Report Type: 
  Country: None (occurrence: None)
  Receive Date: 20060224
  Receipt Date: 20051013
  Transmission Date: 20060701
  Serious: Yes (Hospitalization)
  Sender: FDA-Public Use
  Company Number: US-MERCK-0510USA07549

PATIENT
  Age: 51 Year
  Sex: Male

DRUGS (2)
  1. VIOXX [Suspect]
     Route: 048
     Dates: start: 20000101, end: 20040101
  2. VIOXX [Suspect]
     Route: 048
     Dates: start: 20001101

REACTIONS (29)
  - ATRIOVENTRICULAR BLOCK COMPLETE [None]
  - BRONCHIAL HYPERACTIVITY [None]
  - CARDIAC ARREST [None]
  - CARDIAC FAILURE CONGESTIVE [None]
  - CARDIOGENIC SHOCK [None]
  - CEREBELLAR INFARCTION [None]
  - CEREBROVASCULAR ACCIDENT [None]
  - COMPARTMENT SYNDROME [None]
  - CORONARY ARTERY OCCLUSION [None]
  - ESCHERICHIA URINARY TRACT INFECTION [None]
  - FALL [None]
  - FEMORAL ARTERIAL STENOSIS [None]
  - HYPERLIPIDAEMIA [None]
  - HYPERTENSION [None]
  - MITRAL VALVE INCOMPETENCE [None]
  - MYOCARDIAL INFARCTION [None]
  - PERICARDIAL EFFUSION [None]
  - PERICARDITIS [None]
  - PERIPHERAL VASCULAR DISORDER [None]
  - POST PROCEDURAL COMPLICATION [None]
  - RENAL CYST [None]
  - RENAL FAILURE ACUTE [None]
  - RENAL FAILURE CHRONIC [None]
  - SINUS TACHYCARDIA [None]
  - TRICUSPID VALVE INCOMPETENCE [None]
  - URINARY TRACT INFECTION [None]
  - VENTRICULAR DYSFUNCTION [None]
  - VENTRICULAR EXTRASYSTOLES [None]
  - VENTRICULAR FIBRILLATION [None]
